FAERS Safety Report 8862724 (Version 2)
Quarter: 2013Q2

REPORT INFORMATION
  Report Type: Report from Study
  Country: JP (occurrence: JP)
  Receive Date: 20121026
  Receipt Date: 20130508
  Transmission Date: 20140414
  Serious: Yes (Other)
  Sender: FDA-Public Use
  Company Number: JP-VERTEX PHARMACEUTICAL INC.-AE-2012-006175

PATIENT
  Age: 70 Year
  Sex: Female

DRUGS (15)
  1. VX-950 (TELAPREVIR) [Suspect]
     Indication: CHRONIC HEPATITIS C
     Dosage: 1500 MG, QD
     Route: 048
     Dates: start: 20120120, end: 20120308
  2. VX-950 (TELAPREVIR) [Suspect]
     Dosage: 1000 MG, QD
     Route: 048
     Dates: start: 20120309, end: 20120413
  3. REBETOL [Suspect]
     Indication: CHRONIC HEPATITIS C
     Dosage: 600 MG, QD
     Route: 048
     Dates: start: 20120120, end: 20120209
  4. REBETOL [Suspect]
     Dosage: 400 MG, QD
     Route: 048
     Dates: start: 20120210, end: 20120308
  5. REBETOL [Suspect]
     Dosage: 200 MG, QD
     Route: 048
     Dates: start: 20120309, end: 20120315
  6. REBETOL [Suspect]
     Dosage: 200 MG, QOD
     Route: 048
     Dates: start: 20120330, end: 20120524
  7. REBETOL [Suspect]
     Dosage: 200 MG, QD
     Route: 048
     Dates: start: 20120629, end: 20120706
  8. PEGINTERFERON ALFA-2B [Suspect]
     Indication: CHRONIC HEPATITIS C
     Dosage: 1.5 ?G/KG, WEEKLY
     Route: 058
     Dates: start: 20120120, end: 20120706
  9. URSO [Concomitant]
     Dosage: 300 MG, QD
     Route: 048
     Dates: end: 20120216
  10. DAI-KENCHU-TO [Concomitant]
     Dosage: 15 G, QD
     Route: 048
  11. NEXIUM [Concomitant]
     Dosage: 20 MG, QD
     Route: 048
  12. CEREKINON [Concomitant]
     Dosage: 300 MG, QD
     Route: 048
  13. CELECOX [Concomitant]
     Dosage: 200 MG, QD
     Route: 048
  14. HIRUDOID [Concomitant]
     Dosage: UNK, PRN
     Route: 061
     Dates: start: 20120120, end: 20120706
  15. VOLTAREN [Concomitant]
     Dosage: UNK UNK, PRN
     Route: 048
     Dates: start: 20120120, end: 20120401

REACTIONS (3)
  - Pericardial effusion [Recovered/Resolved]
  - Renal impairment [Recovered/Resolved]
  - Haemoglobin decreased [Recovered/Resolved]
